FAERS Safety Report 4575976-2 (Version None)
Quarter: 2005Q1

REPORT INFORMATION
  Report Type: 
  Country: None (occurrence: None)
  Receive Date: 20050204
  Receipt Date: 20050121
  Transmission Date: 20050727
  Serious: Yes (Life-Threatening)
  Sender: FDA-Public Use
  Company Number: GB-SHR-03-004780

PATIENT
  Sex: Female

DRUGS (1)
  1. YASMIN [Suspect]
     Indication: ORAL CONTRACEPTION
     Dosage: 1 TBS, 21D/28D, ORAL
     Route: 048
     Dates: start: 20020917, end: 20030107

REACTIONS (1)
  - BREAST CANCER METASTATIC [None]
